FAERS Safety Report 9311729 (Version 1)
Quarter: 2013Q1

REPORT INFORMATION
  Report Type: Spontaneous
  Country: FR (occurrence: None)
  Receive Date: 20130124
  Receipt Date: 20130124
  Transmission Date: 20140127
  Serious: Yes (Hospitalization)
  Sender: FDA-Public Use
  Company Number: 2012FR000721

PATIENT
  Age: 69 Year
  Sex: Male
  Weight: 66 kg

DRUGS (4)
  1. PONATINIB [Suspect]
     Indication: CHRONIC MYELOID LEUKAEMIA
     Route: 048
     Dates: start: 20110518, end: 20120714
  2. ALLOPURINOL [Concomitant]
  3. CALCIUM GLUCONATE [Concomitant]
  4. ARANESP [Concomitant]

REACTIONS (3)
  - VIIth nerve paralysis [None]
  - Atrial fibrillation [None]
  - Ocular hyperaemia [None]
